FAERS Safety Report 8790768 (Version 1)
Quarter: 2012Q4

REPORT INFORMATION
  Report Type: Spontaneous
  Country: US (occurrence: None)
  Receive Date: 20120913
  Receipt Date: 20120913
  Transmission Date: 20130627
  Serious: Yes (Hospitalization)
  Sender: FDA-Public Use
  Company Number: None

PATIENT
  Age: 75 Year
  Sex: Female

DRUGS (1)
  1. VANCOMYCIN HCL [Suspect]
     Indication: SEPSIS MRSA
     Dosage: every 24 hours
     Route: 042
     Dates: start: 20120831, end: 20120921

REACTIONS (2)
  - Product quality issue [None]
  - Drug level increased [None]
